FAERS Safety Report 4478383-6 (Version None)
Quarter: 2004Q3

REPORT INFORMATION
  Report Type: 
  Country: None (occurrence: None)
  Receive Date: 20040923
  Receipt Date: 20040624
  Transmission Date: 20050211
  Serious: No
  Sender: FDA-Public Use
  Company Number: USA040670999

PATIENT
  Age: 55 Year
  Sex: Female
  Weight: 53 kg

DRUGS (1)
  1. FORTEO [Suspect]
     Indication: OSTEOPOROSIS
     Dosage: 20 UG/BT DAY
     Dates: start: 20040610

REACTIONS (5)
  - HEADACHE [None]
  - INJECTION SITE HAEMORRHAGE [None]
  - MIGRAINE [None]
  - NAUSEA [None]
  - PHOTOPHOBIA [None]
